FAERS Safety Report 9563052 (Version 2)
Quarter: 2013Q3

REPORT INFORMATION
  Report Type: Spontaneous
  Country: US (occurrence: US)
  Receive Date: 20130927
  Receipt Date: 20130927
  Transmission Date: 20140515
  Serious: No
  Sender: FDA-Public Use
  Company Number: US-BRISTOL-MYERS SQUIBB COMPANY-16917130

PATIENT
  Age: 53 Year
  Sex: Male

DRUGS (9)
  1. ONGLYZA TABS 5 MG [Suspect]
     Indication: DIABETES MELLITUS
     Route: 048
     Dates: start: 201204, end: 201208
  2. BABY ASPIRIN [Concomitant]
  3. ATENOLOL [Concomitant]
     Dosage: 50 MG.
  4. HYDRALAZINE [Concomitant]
     Dosage: 100 MG.
  5. PRAVASTATIN SODIUM [Concomitant]
  6. ULORIC [Concomitant]
  7. GLIPIZIDE [Concomitant]
  8. VITAMIN D [Concomitant]
  9. CIALIS [Concomitant]

REACTIONS (1)
  - Rash [Unknown]
